FAERS Safety Report 7708001-2 (Version None)
Quarter: 2011Q3

REPORT INFORMATION
  Report Type: 
  Country: None (occurrence: None)
  Receive Date: 20110824
  Receipt Date: 20110816
  Transmission Date: 20111222
  Serious: Yes (Death, Hospitalization)
  Sender: FDA-Public Use
  Company Number: US-CELGENEUS-163-21880-11072747

PATIENT
  Sex: Female

DRUGS (12)
  1. FUROSEMIDE [Concomitant]
     Dosage: 20 MILLIGRAM
     Route: 065
  2. ALENDRONATE SODIUM [Concomitant]
     Dosage: 70 MILLIGRAM
     Route: 065
  3. INDAPAMIDE [Concomitant]
     Dosage: 2.5 MILLIGRAM
     Route: 065
  4. FLUOXETINE [Concomitant]
     Dosage: 40 MILLIGRAM
     Route: 065
  5. OXYCODONE HCL AND ACETAMINOPHEN [Concomitant]
     Dosage: 7.5/325MG
     Route: 065
  6. LISINOPRIL [Concomitant]
     Dosage: 2.5 MILLIGRAM
     Route: 065
  7. ENALAPRIL MALEATE [Concomitant]
     Dosage: 5 MILLIGRAM
     Route: 065
  8. MELOXICAM [Concomitant]
     Dosage: 15 MILLIGRAM
     Route: 065
  9. REVLIMID [Suspect]
     Indication: MULTIPLE MYELOMA
     Dosage: 25 MILLIGRAM
     Route: 048
     Dates: start: 20110628, end: 20110727
  10. DEXAMETHASONE [Concomitant]
     Dosage: 4 MILLIGRAM
     Route: 065
  11. METOCLOPRAMIDE [Concomitant]
     Dosage: 10 GRAM
     Route: 065
  12. GABAPENTIN [Concomitant]
     Dosage: 300 GRAM
     Route: 065

REACTIONS (2)
  - PNEUMONIA [None]
  - DEATH [None]
